FAERS Safety Report 6825540-7 (Version None)
Quarter: 2010Q3

REPORT INFORMATION
  Report Type: 
  Country: None (occurrence: None)
  Receive Date: 20100708
  Receipt Date: 20080115
  Transmission Date: 20110219
  Serious: No
  Sender: FDA-Public Use
  Company Number: US-PFIZER INC-2006109696

PATIENT
  Sex: Female
  Weight: 80.3 kg

DRUGS (15)
  1. VARENICLINE [Suspect]
     Indication: EX-TOBACCO USER
     Dates: start: 20060801, end: 20060901
  2. DIURETICS [Concomitant]
  3. THEOPHYLLINE [Concomitant]
  4. ADVAIR DISKUS 100/50 [Concomitant]
  5. SPIRIVA [Concomitant]
  6. ZYRTEC [Concomitant]
  7. PROTONIX [Concomitant]
  8. VITAMINS [Concomitant]
  9. ATIVAN [Concomitant]
  10. LEXAPRO [Concomitant]
  11. ACETYLSALICYLIC ACID [Concomitant]
  12. POTASSIUM CHLORIDE [Concomitant]
  13. MYLANTA [Concomitant]
  14. TRAZODONE [Concomitant]
  15. ARAVA [Concomitant]

REACTIONS (5)
  - ABDOMINAL PAIN UPPER [None]
  - ASTHMA [None]
  - FEELING ABNORMAL [None]
  - HEADACHE [None]
  - NAUSEA [None]
